FAERS Safety Report 6091352-8 (Version None)
Quarter: 2009Q1

REPORT INFORMATION
  Report Type: 
  Country: None (occurrence: None)
  Receive Date: 20090219
  Receipt Date: 20090219
  Transmission Date: 20090719
  Serious: Yes (Hospitalization)
  Sender: FDA-Public Use
  Company Number: None

PATIENT
  Age: 67 Year
  Sex: Male

DRUGS (10)
  1. LUCENTIS [Suspect]
     Indication: CHOROIDAL NEOVASCULARISATION
     Dosage: RANIBIZUMAB 1.0MG
     Dates: start: 20081124
  2. LUCENTIS [Suspect]
     Indication: CHOROIDAL NEOVASCULARISATION
     Dosage: RANIBIZUMAB 1.0MG
     Dates: start: 20090203
  3. ATENOLOL [Concomitant]
  4. DIAZIDE [Concomitant]
  5. ENALAPRIL [Concomitant]
  6. NEXIUM [Concomitant]
  7. LORAZEPAM [Concomitant]
  8. GLYBURIDE [Concomitant]
  9. SKELAXIN [Concomitant]
  10. HYDROCODONE BITARTRATE [Concomitant]

REACTIONS (3)
  - INTERVERTEBRAL DISC DEGENERATION [None]
  - LUMBAR RADICULOPATHY [None]
  - PAIN IN EXTREMITY [None]
